FAERS Safety Report 23027489 (Version 6)
Quarter: 2025Q4

REPORT INFORMATION
  Report Type: Report from Study
  Country: CA (occurrence: CA)
  Receive Date: 20231004
  Receipt Date: 20251218
  Transmission Date: 20260117
  Serious: Yes (Other)
  Sender: SANDOZ
  Company Number: CA-002147023-NVSC2022CA195502

PATIENT
  Sex: Female

DRUGS (5)
  1. HYRIMOZ [Suspect]
     Active Substance: ADALIMUMAB-ADAZ
     Dosage: RE-INDUCTION DOSE: 160 MG
     Route: 058
     Dates: start: 20250611
  2. HYRIMOZ [Suspect]
     Active Substance: ADALIMUMAB-ADAZ
     Indication: Ankylosing spondylitis
     Dosage: 40 MG, QW
     Route: 058
     Dates: start: 20220621
  3. HYRIMOZ [Suspect]
     Active Substance: ADALIMUMAB-ADAZ
     Dosage: 40 MG, QW, PRE-FILLED SYRINGE
     Route: 058
  4. HYRIMOZ [Suspect]
     Active Substance: ADALIMUMAB-ADAZ
     Indication: Crohn^s disease
     Dosage: 40 MG
     Route: 058
     Dates: start: 20231228
  5. PENTASA [Concomitant]
     Active Substance: MESALAMINE
     Indication: Product used for unknown indication
     Dosage: UNK
     Route: 065

REACTIONS (12)
  - Crohn^s disease [Recovering/Resolving]
  - Spondylitis [Recovering/Resolving]
  - Cholangitis sclerosing [Unknown]
  - Lymphadenopathy [Recovering/Resolving]
  - Malaise [Recovering/Resolving]
  - Fatigue [Recovering/Resolving]
  - Infectious mononucleosis [Recovering/Resolving]
  - Hepatic enzyme increased [Recovering/Resolving]
  - Therapeutic response decreased [Recovering/Resolving]
  - Eye infection [Unknown]
  - Tooth abscess [Unknown]
  - Off label use [Unknown]
